FAERS Safety Report 10167544 (Version 2)
Quarter: 2014Q2

REPORT INFORMATION
  Report Type: Spontaneous
  Country: US (occurrence: None)
  Receive Date: 20140508
  Receipt Date: 20140616
  Transmission Date: 20141212
  Serious: Yes (Hospitalization, Other)
  Sender: FDA-Public Use
  Company Number: UTC-048048

PATIENT
  Age: 47 Year
  Sex: Female
  Weight: 90.72 kg

DRUGS (1)
  1. TYVASO [Suspect]
     Indication: PULMONARY ARTERIAL HYPERTENSION
     Route: 055
     Dates: start: 20130322

REACTIONS (7)
  - Stress cardiomyopathy [None]
  - Joint swelling [None]
  - Local swelling [None]
  - Stress [None]
  - Treatment noncompliance [None]
  - Cellulitis [None]
  - Peripheral swelling [None]
